FAERS Safety Report 23391636 (Version 1)
Quarter: 2024Q1

REPORT INFORMATION
  Report Type: Spontaneous
  Country: DE (occurrence: DE)
  Receive Date: 20240111
  Receipt Date: 20240111
  Transmission Date: 20240409
  Serious: Yes (Other)
  Sender: FDA-Public Use
  Company Number: DE-BRISTOL-MYERS SQUIBB COMPANY-2024-005553

PATIENT
  Sex: Male

DRUGS (4)
  1. ELIQUIS [Suspect]
     Active Substance: APIXABAN
     Indication: Atrial fibrillation
  2. ELIQUIS [Suspect]
     Active Substance: APIXABAN
     Indication: Cerebrovascular accident
  3. ACECLOFENAC [Suspect]
     Active Substance: ACECLOFENAC
     Indication: Atrial fibrillation
  4. ACECLOFENAC [Suspect]
     Active Substance: ACECLOFENAC
     Indication: Cerebrovascular accident

REACTIONS (2)
  - Aortic valve disease [Unknown]
  - Mitral valve disease [Unknown]
